FAERS Safety Report 7475838-7 (Version None)
Quarter: 2011Q2

REPORT INFORMATION
  Report Type: 
  Country: None (occurrence: None)
  Receive Date: 20110510
  Receipt Date: 20110510
  Transmission Date: 20111010
  Serious: Yes (Other)
  Sender: FDA-Public Use
  Company Number: None

PATIENT
  Sex: Male
  Weight: 71.2147 kg

DRUGS (2)
  1. PREVPAC [Suspect]
     Dosage: 2 TABLETS AM/PM EVERY 12HRS PO
     Route: 048
     Dates: start: 20110419, end: 20110429
  2. PREVPAC [Suspect]
     Indication: HELICOBACTER INFECTION
     Dosage: 2 CAPSULES AM/PM EVERY 12HRS PO
     Route: 048
     Dates: start: 20110419, end: 20110429

REACTIONS (4)
  - DRY MOUTH [None]
  - DRUG HYPERSENSITIVITY [None]
  - DECREASED APPETITE [None]
  - DIARRHOEA [None]
